FAERS Safety Report 11339715 (Version 2)
Quarter: 2015Q3

REPORT INFORMATION
  Report Type: Spontaneous
  Country: AT (occurrence: None)
  Receive Date: 20150803
  Receipt Date: 20150821
  Transmission Date: 20151125
  Serious: No
  Sender: FDA-Public Use
  Company Number: AT-LHC-2015097

PATIENT
  Age: 57 Year
  Sex: Female

DRUGS (1)
  1. CONOXIA, MEDIZINISCHES GAS (OXYGEN) (INHALATION GAS) (OXYGEN) (VERUM) [Suspect]
     Active Substance: OXYGEN
     Indication: OXYGEN SATURATION DECREASED
     Dosage: 2 L/MIN FOR 16 HOURS
     Route: 055
     Dates: start: 20140128

REACTIONS (4)
  - Product quality issue [None]
  - Product odour abnormal [None]
  - Feeling abnormal [None]
  - Nausea [None]

NARRATIVE: CASE EVENT DATE: 20150721
